FAERS Safety Report 5140527-0 (Version None)
Quarter: 2006Q4

REPORT INFORMATION
  Report Type: 
  Country: None (occurrence: None)
  Receive Date: 20061025
  Receipt Date: 20061023
  Transmission Date: 20070319
  Serious: Yes (Life-Threatening, Other)
  Sender: FDA-Public Use
  Company Number: 132312

PATIENT
  Age: 73 Year
  Sex: Male
  Weight: 75 kg

DRUGS (7)
  1. SOLARAZE GEL [Suspect]
     Indication: ACTINIC KERATOSIS
     Dosage: TOPICAL APPLICATION BID
     Route: 061
     Dates: start: 20060105, end: 20060205
  2. WARFARIN 01 [Concomitant]
  3. DIGOXIN [Concomitant]
  4. BISOPROLOL FUMARATE [Concomitant]
  5. CANDESARTAN [Concomitant]
  6. FUROSEMIDE [Concomitant]
  7. RANITIDINE [Concomitant]

REACTIONS (3)
  - CONDITION AGGRAVATED [None]
  - HYPERTENSION [None]
  - INTERNATIONAL NORMALISED RATIO INCREASED [None]
